FAERS Safety Report 8853589 (Version 3)
Quarter: 2012Q4

REPORT INFORMATION
  Report Type: 
  Country: US (occurrence: US)
  Receive Date: 20121023
  Receipt Date: 20121115
  Transmission Date: 20130627
  Serious: Yes (Hospitalization, Other)
  Sender: FDA-Public Use
  Company Number: US-ACTELION-A-US2012-72869

PATIENT
  Age: 48 Year
  Sex: Male

DRUGS (1)
  1. TRACLEER [Suspect]
     Indication: PULMONARY ARTERIAL HYPERTENSION
     Dosage: UNK
     Route: 048

REACTIONS (5)
  - Supraventricular tachycardia [Unknown]
  - Cardioversion [Unknown]
  - Cardiac disorder [Unknown]
  - Blood pressure increased [Unknown]
  - Condition aggravated [Unknown]
